FAERS Safety Report 8358821-9 (Version None)
Quarter: 2012Q2

REPORT INFORMATION
  Report Type: 
  Country: None (occurrence: None)
  Receive Date: 20120515
  Receipt Date: 20120509
  Transmission Date: 20120825
  Serious: Yes (Other)
  Sender: FDA-Public Use
  Company Number: PHHY2012BE039540

PATIENT
  Age: 86 Year
  Sex: Male

DRUGS (2)
  1. METRONIDAZOLE [Suspect]
     Indication: ABSCESS
     Dosage: 1.5 MG, QD
     Route: 048
  2. CIPROFLOXACIN [Concomitant]
     Dosage: 800 MG, QD
     Route: 048

REACTIONS (11)
  - GAIT DISTURBANCE [None]
  - NYSTAGMUS [None]
  - NEUROPATHY PERIPHERAL [None]
  - ANAESTHESIA [None]
  - DYSSTASIA [None]
  - PARAESTHESIA [None]
  - DIPLOPIA [None]
  - DYSARTHRIA [None]
  - ATAXIA [None]
  - CEREBELLAR SYNDROME [None]
  - AREFLEXIA [None]
